FAERS Safety Report 8124408-6 (Version None)
Quarter: 2012Q1

REPORT INFORMATION
  Report Type: 
  Country: None (occurrence: None)
  Receive Date: 20120209
  Receipt Date: 20120130
  Transmission Date: 20120608
  Serious: Yes (Hospitalization)
  Sender: FDA-Public Use
  Company Number: DE-JNJFOC-20120204051

PATIENT
  Sex: Female
  Weight: 81 kg

DRUGS (1)
  1. PALEXIA RETARD [Suspect]
     Indication: PAIN
     Route: 048
     Dates: start: 20111024

REACTIONS (2)
  - SYNCOPE [None]
  - BURNING SENSATION [None]
